FAERS Safety Report 6435343-3 (Version None)
Quarter: 2009Q4

REPORT INFORMATION
  Report Type: 
  Country: None (occurrence: None)
  Receive Date: 20091106
  Receipt Date: 20091029
  Transmission Date: 20100525
  Serious: Yes (Other)
  Sender: FDA-Public Use
  Company Number: 8053666

PATIENT
  Age: 43 Year
  Sex: Male

DRUGS (5)
  1. CIMZIA [Suspect]
     Indication: CROHN'S DISEASE
     Dosage: 200 MG /M SC
     Route: 058
     Dates: start: 20090120
  2. CIMZIA [Suspect]
     Indication: CROHN'S DISEASE
     Dosage: 200 MG /M SC
     Route: 058
  3. TOPROL-XL [Concomitant]
  4. FOSAMAX [Concomitant]
  5. PREVACID [Concomitant]

REACTIONS (7)
  - ABDOMINAL ADHESIONS [None]
  - ABDOMINAL DISTENSION [None]
  - ABDOMINAL PAIN [None]
  - INCISIONAL HERNIA [None]
  - PROCEDURAL COMPLICATION [None]
  - VENTRICULAR TACHYCARDIA [None]
  - VOMITING [None]
